FAERS Safety Report 19832958 (Version 3)
Quarter: 2021Q4

REPORT INFORMATION
  Report Type: Spontaneous
  Country: BR (occurrence: BR)
  Receive Date: 20210915
  Receipt Date: 20211110
  Transmission Date: 20220303
  Serious: Yes (Hospitalization, Other)
  Sender: FDA-Public Use
  Company Number: BR-002147023-NVSC2021BR207668

PATIENT
  Age: 27 Year
  Sex: Female

DRUGS (5)
  1. CATAFLAM [Suspect]
     Active Substance: DICLOFENAC POTASSIUM
     Indication: Oropharyngeal pain
     Dosage: UNK
     Route: 065
  2. CATAFLAM [Suspect]
     Active Substance: DICLOFENAC POTASSIUM
     Dosage: UNK
     Route: 065
  3. PREDNISONE [Concomitant]
     Active Substance: PREDNISONE
     Indication: Platelet count increased
     Dosage: 1 DF, QD
     Route: 048
     Dates: start: 2001
  4. PREDNISONE [Concomitant]
     Active Substance: PREDNISONE
     Indication: Hypersensitivity
  5. ROMIPLOSTIM [Concomitant]
     Active Substance: ROMIPLOSTIM
     Indication: Platelet count increased
     Dosage: UNK, QW
     Route: 065
     Dates: start: 2020

REACTIONS (26)
  - Drug hypersensitivity [Recovered/Resolved]
  - Asphyxia [Recovered/Resolved]
  - Blister [Recovered/Resolved]
  - Contusion [Unknown]
  - Oropharyngeal discomfort [Recovered/Resolved]
  - Eye swelling [Unknown]
  - Platelet count decreased [Unknown]
  - Swelling face [Not Recovered/Not Resolved]
  - Pyrexia [Recovered/Resolved]
  - Illness [Unknown]
  - Haemorrhage [Unknown]
  - Liver disorder [Unknown]
  - Visual impairment [Unknown]
  - Blindness [Unknown]
  - Sensation of foreign body [Unknown]
  - Loss of consciousness [Unknown]
  - Feeling abnormal [Unknown]
  - Rash macular [Unknown]
  - Rash [Unknown]
  - Mouth swelling [Unknown]
  - Weight increased [Unknown]
  - Osteoporosis [Unknown]
  - Oropharyngeal pain [Recovered/Resolved]
  - Hepatomegaly [Unknown]
  - Syncope [Recovered/Resolved]
  - Respiratory arrest [Recovered/Resolved]

NARRATIVE: CASE EVENT DATE: 20010101
